FAERS Safety Report 4476932-5 (Version None)
Quarter: 2004Q4

REPORT INFORMATION
  Report Type: 
  Country: None (occurrence: None)
  Receive Date: 20041012
  Receipt Date: 20041004
  Transmission Date: 20050328
  Serious: Yes (Death)
  Sender: FDA-Public Use
  Company Number: KII-2004-0012747

PATIENT
  Age: 51 Year
  Sex: Male

DRUGS (1)
  1. OXYCONTIN [Suspect]
     Indication: CANCER PAIN
     Dosage: 160 MG, BID,

REACTIONS (2)
  - CONDITION AGGRAVATED [None]
  - LUNG CANCER METASTATIC [None]
